FAERS Safety Report 15093177 (Version 3)
Quarter: 2018Q3

REPORT INFORMATION
  Report Type: Spontaneous
  Country: ES (occurrence: ES)
  Receive Date: 20180629
  Receipt Date: 20180803
  Transmission Date: 20181010
  Serious: Yes (Hospitalization)
  Sender: FDA-Public Use
  Company Number: ES-EISAI MEDICAL RESEARCH-EC-2018-042072

PATIENT
  Age: 21 Year
  Sex: Male
  Weight: 75 kg

DRUGS (7)
  1. FYCOMPA [Suspect]
     Active Substance: PERAMPANEL
     Route: 048
     Dates: start: 20180623, end: 20180627
  2. FYCOMPA [Suspect]
     Active Substance: PERAMPANEL
     Route: 048
     Dates: start: 20180628, end: 20180629
  3. LEVETIRACETAM. [Concomitant]
     Active Substance: LEVETIRACETAM
     Indication: JUVENILE MYOCLONIC EPILEPSY
     Dosage: 3000 MG PER DAY
     Route: 065
     Dates: start: 2017, end: 2018
  4. LEVETIRACETAM. [Concomitant]
     Active Substance: LEVETIRACETAM
     Dosage: 2000 MG PER DAY
     Route: 065
     Dates: start: 2018, end: 20180630
  5. FYCOMPA [Suspect]
     Active Substance: PERAMPANEL
     Indication: JUVENILE MYOCLONIC EPILEPSY
     Route: 048
     Dates: start: 2018, end: 2018
  6. FYCOMPA [Suspect]
     Active Substance: PERAMPANEL
     Route: 048
     Dates: start: 2018, end: 2018
  7. FYCOMPA [Suspect]
     Active Substance: PERAMPANEL
     Route: 048
     Dates: start: 2018, end: 20180622

REACTIONS (1)
  - Acute psychosis [Recovered/Resolved]

NARRATIVE: CASE EVENT DATE: 20180627
